FAERS Safety Report 7947208-6 (Version None)
Quarter: 2011Q4

REPORT INFORMATION
  Report Type: 
  Country: None (occurrence: None)
  Receive Date: 20111129
  Receipt Date: 20111118
  Transmission Date: 20120403
  Serious: Yes (Disabling, Other)
  Sender: FDA-Public Use
  Company Number: US-ASTRAZENECA-2011SE70291

PATIENT
  Age: 52 Year
  Sex: Female
  Weight: 60.8 kg

DRUGS (2)
  1. ARIMIDEX [Suspect]
     Indication: BREAST CANCER
     Route: 048
     Dates: start: 20100601, end: 20100101
  2. FEMARA [Suspect]
     Indication: BREAST CANCER
     Dates: start: 20100101, end: 20100101

REACTIONS (3)
  - ACTIVITIES OF DAILY LIVING IMPAIRED [None]
  - ARTHRITIS [None]
  - HYPOAESTHESIA [None]
